FAERS Safety Report 5058455-8 (Version None)
Quarter: 2006Q3

REPORT INFORMATION
  Report Type: 
  Country: None (occurrence: None)
  Receive Date: 20060719
  Receipt Date: 20060706
  Transmission Date: 20061208
  Serious: Yes (Other)
  Sender: FDA-Public Use
  Company Number: B0430766A

PATIENT
  Age: 77 Year
  Sex: Female
  Weight: 63.5489 kg

DRUGS (8)
  1. PAXIL [Suspect]
     Indication: DEPRESSION
     Dosage: 20 MG / PER DAY
  2. VALPROATE SODIUM [Suspect]
     Indication: EPILEPSY
     Dosage: 1200 MG / PER DAY / INTRAVENOUS
     Route: 042
  3. VALPROATE SODIUM [Suspect]
     Indication: EPILEPSY
     Dosage: PER DAY / ORAL
     Route: 048
  4. AMIODARONE HCL [Suspect]
     Indication: ATRIAL FIBRILLATION
     Dosage: PER DAY
  5. OMEPRAZOLE [Concomitant]
  6. BUFLOMEDIL HYDROCHLORIDE [Concomitant]
  7. GABAPENTIN [Concomitant]
  8. CITALOPRAM HYDROBROMIDE [Concomitant]

REACTIONS (5)
  - ATRIAL FIBRILLATION [None]
  - EXTRAPYRAMIDAL DISORDER [None]
  - IATROGENIC INJURY [None]
  - PARKINSONISM [None]
  - PROTEIN TOTAL INCREASED [None]
